FAERS Safety Report 10210014 (Version 1)
Quarter: 2014Q2

REPORT INFORMATION
  Report Type: Spontaneous
  Country: CH (occurrence: CH)
  Receive Date: 20140602
  Receipt Date: 20140602
  Transmission Date: 20141212
  Serious: Yes (Hospitalization)
  Sender: FDA-Public Use
  Company Number: CH-JNJFOC-20140512285

PATIENT
  Age: 62 Year
  Sex: Male
  Weight: 87.2 kg

DRUGS (9)
  1. RISPERDAL [Suspect]
     Indication: PRODUCT USED FOR UNKNOWN INDICATION
     Route: 048
  2. RISPERDAL [Suspect]
     Indication: PRODUCT USED FOR UNKNOWN INDICATION
     Route: 048
  3. DEPAKINE [Suspect]
     Indication: PRODUCT USED FOR UNKNOWN INDICATION
     Route: 048
  4. ASPIRIN [Concomitant]
     Route: 048
  5. AMARYL [Concomitant]
     Route: 048
     Dates: start: 20140501
  6. JANUVIA [Concomitant]
     Route: 048
  7. METFIN [Concomitant]
     Route: 048
  8. EUTHYROX [Concomitant]
     Route: 048
  9. DALMADORM [Concomitant]
     Route: 048

REACTIONS (2)
  - Hyponatraemia [Recovered/Resolved]
  - Generalised tonic-clonic seizure [Recovered/Resolved]
